FAERS Safety Report 23543834 (Version 1)
Quarter: 2024Q1

REPORT INFORMATION
  Report Type: Spontaneous
  Country: US (occurrence: None)
  Receive Date: 20240220
  Receipt Date: 20240220
  Transmission Date: 20240409
  Serious: Yes (Hospitalization)
  Sender: FDA-Public Use
  Company Number: US-ROCHE-3509576

PATIENT
  Sex: Female

DRUGS (1)
  1. PULMOZYME [Suspect]
     Active Substance: DORNASE ALFA
     Indication: Cystic fibrosis
     Dosage: SOL 1MG ML, INHALE 1 AMPULE 2.5MG VIA NEBULIZER ONCE A DAY
     Route: 055

REACTIONS (1)
  - Influenza [Not Recovered/Not Resolved]
